FAERS Safety Report 17655471 (Version 1)
Quarter: 2020Q2

REPORT INFORMATION
  Report Type: Spontaneous
  Country: US (occurrence: US)
  Receive Date: 20200410
  Receipt Date: 20200410
  Transmission Date: 20200713
  Serious: Yes (Hospitalization)
  Sender: FDA-Public Use
  Company Number: None

PATIENT
  Sex: Female

DRUGS (9)
  1. GEMFIBROZIL. [Concomitant]
     Active Substance: GEMFIBROZIL
  2. OMPRAZOLE [Concomitant]
     Active Substance: OMEPRAZOLE
  3. REPATHA [Suspect]
     Active Substance: EVOLOCUMAB
     Indication: TYPE V HYPERLIPIDAEMIA
     Dosage: ?          OTHER FREQUENCY:EVERY TWO WEEKS;?
     Route: 058
     Dates: start: 20180219
  4. CLONAZEPAM. [Concomitant]
     Active Substance: CLONAZEPAM
  5. LAMOTRIGNE [Concomitant]
  6. LATANOPROST. [Concomitant]
     Active Substance: LATANOPROST
  7. METOPROLOL. [Concomitant]
     Active Substance: METOPROLOL
  8. SINGULAIR [Concomitant]
     Active Substance: MONTELUKAST SODIUM
  9. VENLAFAXINE [Concomitant]
     Active Substance: VENLAFAXINE HYDROCHLORIDE

REACTIONS (2)
  - Carotid artery dissection [None]
  - Therapy interrupted [None]
